FAERS Safety Report 6915038-X (Version None)
Quarter: 2010Q3

REPORT INFORMATION
  Report Type: 
  Country: None (occurrence: None)
  Receive Date: 20100809
  Receipt Date: 20100726
  Transmission Date: 20110219
  Serious: Yes (Congenital Anomaly)
  Sender: FDA-Public Use
  Company Number: PK-MYLANLABS-2010S1013354

PATIENT
  Sex: Male
  Weight: 1 kg

DRUGS (3)
  1. AZATHIOPRINE [Suspect]
     Indication: PEMPHIGUS
     Dosage: 3 MG/KG
  2. PREDNISOLONE [Concomitant]
     Indication: PEMPHIGUS
  3. PREDNISOLONE [Concomitant]

REACTIONS (5)
  - APLASIA CUTIS CONGENITA [None]
  - CRYPTORCHISM [None]
  - EAR MALFORMATION [None]
  - FOETAL GROWTH RESTRICTION [None]
  - MICROGNATHIA [None]
